FAERS Safety Report 25512450 (Version 1)
Quarter: 2025Q3

REPORT INFORMATION
  Report Type: Spontaneous
  Country: JP (occurrence: JP)
  Receive Date: 20250703
  Receipt Date: 20250703
  Transmission Date: 20251021
  Serious: Yes (Hospitalization)
  Sender: ALNYLAM PHARMACEUTICALS
  Company Number: JP-ALNYLAM PHARMACEUTICALS, INC.-ALN-2025-004074

PATIENT

DRUGS (1)
  1. ONPATTRO [Suspect]
     Active Substance: PATISIRAN SODIUM
     Indication: Product used for unknown indication
     Route: 041

REACTIONS (1)
  - Hospitalisation [Unknown]
